FAERS Safety Report 4288816-6 (Version None)
Quarter: 2004Q1

REPORT INFORMATION
  Report Type: 
  Country: None (occurrence: None)
  Receive Date: 20040205
  Receipt Date: 20040126
  Transmission Date: 20041129
  Serious: Yes (Other)
  Sender: FDA-Public Use
  Company Number: 2003167219CA

PATIENT
  Sex: Female

DRUGS (7)
  1. BEXTRA [Suspect]
     Dosage: 10 MG, QD, ORAL
     Route: 048
     Dates: start: 20030627, end: 20030101
  2. NITROGLICERINA [Concomitant]
  3. OMEPRAZOLE MAGNESIUM (OMEPRAZOLE MAGNESIUM) [Concomitant]
  4. CALCIUM [Concomitant]
  5. VITAMIN D [Concomitant]
  6. BISOPROLOL FUMARATE [Concomitant]
  7. AMLODIPINE [Concomitant]

REACTIONS (17)
  - ABDOMINAL PAIN UPPER [None]
  - ANGINA PECTORIS [None]
  - BLISTER [None]
  - BURNING SENSATION [None]
  - BURNING SENSATION MUCOSAL [None]
  - DIFFICULTY IN WALKING [None]
  - DRY MOUTH [None]
  - EYE SWELLING [None]
  - GASTRIC DISORDER [None]
  - NAUSEA [None]
  - PAIN IN JAW [None]
  - PHOTOSENSITIVITY REACTION [None]
  - PRURITUS [None]
  - RESPIRATORY DISORDER [None]
  - SWELLING [None]
  - URTICARIA [None]
  - VOMITING [None]
